FAERS Safety Report 9910039 (Version 1)
Quarter: 2014Q1

REPORT INFORMATION
  Report Type: Spontaneous
  Country: US (occurrence: US)
  Receive Date: 20140219
  Receipt Date: 20140219
  Transmission Date: 20141002
  Serious: No
  Sender: FDA-Public Use
  Company Number: US-PFIZER INC-2014044785

PATIENT
  Age: 71 Year
  Sex: Male
  Weight: 56.69 kg

DRUGS (1)
  1. TESTOSTERONE CIPIONATE [Suspect]
     Indication: HYPOPITUITARISM
     Dosage: 9/10TH OF A CC, EVERY THREE WEEKS
     Dates: start: 1958

REACTIONS (1)
  - Blood testosterone decreased [Unknown]
